FAERS Safety Report 7578728-4 (Version None)
Quarter: 2011Q2

REPORT INFORMATION
  Report Type: 
  Country: None (occurrence: None)
  Receive Date: 20110628
  Receipt Date: 20110622
  Transmission Date: 20111010
  Serious: Yes (Hospitalization, Other)
  Sender: FDA-Public Use
  Company Number: US-ELI_LILLY_AND_COMPANY-US201008005639

PATIENT
  Sex: Female
  Weight: 117.91 kg

DRUGS (6)
  1. BYETTA [Suspect]
     Dosage: 5 UG, BID
     Dates: start: 20080319
  2. METFORMIN HCL [Concomitant]
     Indication: DIABETES MELLITUS
     Dosage: UNK
     Dates: start: 20080319
  3. GLIPIZIDE [Concomitant]
     Indication: DIABETES MELLITUS
     Dosage: UNK
     Dates: start: 20000101
  4. FUROSEMIDE [Concomitant]
     Indication: OEDEMA
     Dosage: UNK
     Dates: start: 20070301, end: 20090601
  5. METOPROLOL TARTRATE [Concomitant]
     Indication: HYPERTENSION
     Dosage: UNK
     Dates: end: 20100401
  6. BYETTA [Suspect]
     Dosage: UNK, UNKNOWN
     Dates: end: 20090622

REACTIONS (2)
  - WEIGHT DECREASED [None]
  - PANCREATITIS ACUTE [None]
